FAERS Safety Report 25109404 (Version 2)
Quarter: 2025Q2

REPORT INFORMATION
  Report Type: Spontaneous
  Country: US (occurrence: US)
  Receive Date: 20250323
  Receipt Date: 20250508
  Transmission Date: 20250716
  Serious: Yes (Death, Life-Threatening, Hospitalization, Other)
  Sender: GLAXOSMITHKLINE
  Company Number: US-GSK-US2025033645

PATIENT

DRUGS (3)
  1. JEMPERLI [Suspect]
     Active Substance: DOSTARLIMAB-GXLY
     Indication: Endometrial cancer
     Route: 042
     Dates: start: 20240919, end: 20241010
  2. TACROLIMUS [Suspect]
     Active Substance: TACROLIMUS
     Indication: Rash
     Route: 061
  3. CARBOPLATIN [Concomitant]
     Active Substance: CARBOPLATIN
     Indication: Product used for unknown indication

REACTIONS (8)
  - Hepatitis [Fatal]
  - Interstitial lung disease [Fatal]
  - Sepsis [Fatal]
  - Pneumonitis [Not Recovered/Not Resolved]
  - Skin lesion [Not Recovered/Not Resolved]
  - Lichen planus [Recovered/Resolved with Sequelae]
  - Immune thrombocytopenia [Not Recovered/Not Resolved]
  - Hepatic failure [Not Recovered/Not Resolved]

NARRATIVE: CASE EVENT DATE: 20241126
